FAERS Safety Report 11050306 (Version 1)
Quarter: 2015Q2

REPORT INFORMATION
  Report Type: Spontaneous
  Country: BR (occurrence: BR)
  Receive Date: 20150421
  Receipt Date: 20150421
  Transmission Date: 20150821
  Serious: Yes (Other)
  Sender: FDA-Public Use
  Company Number: BR-AMGEN-BRASP2015037153

PATIENT
  Age: 56 Year
  Sex: Female
  Weight: 89 kg

DRUGS (9)
  1. ENBREL [Suspect]
     Active Substance: ETANERCEPT
     Indication: RHEUMATOID ARTHRITIS
     Dosage: 50 MG, 1X/WEEK
     Route: 058
     Dates: start: 201503
  2. VELIJA [Concomitant]
     Active Substance: DULOXETINE HYDROCHLORIDE
     Dosage: 60 MG, 1X/DAY
     Dates: start: 201407
  3. VIMOVO [Concomitant]
     Active Substance: ESOMEPRAZOLE MAGNESIUM\NAPROXEN
     Dosage: UNK
  4. PONDERA [Concomitant]
     Active Substance: PAROXETINE HYDROCHLORIDE
     Dosage: 1 PER DAY, EVERYDAY
  5. ARTRODAR [Concomitant]
     Active Substance: DIACEREIN
     Dosage: 1 TABLET EVERY 12H
  6. OSCAL D [Concomitant]
     Active Substance: CALCIUM CARBONATE\CHOLECALCIFEROL
     Dosage: 60 MG, 1X/DAY
     Dates: start: 201407
  7. OSTEOBAN [Concomitant]
     Dosage: 1 PER MONTH
     Dates: start: 2010
  8. OMEPRAZOLE. [Concomitant]
     Active Substance: OMEPRAZOLE
     Dosage: EVERY 12H
  9. TYLEX                              /00020001/ [Concomitant]
     Indication: PAIN
     Dosage: UNK

REACTIONS (3)
  - Fibula fracture [Unknown]
  - Tibia fracture [Unknown]
  - Fall [Unknown]

NARRATIVE: CASE EVENT DATE: 20150318
